FAERS Safety Report 6933254-8 (Version None)
Quarter: 2010Q3

REPORT INFORMATION
  Report Type: 
  Country: None (occurrence: None)
  Receive Date: 20100820
  Receipt Date: 20100813
  Transmission Date: 20110219
  Serious: Yes (Hospitalization, Other)
  Sender: FDA-Public Use
  Company Number: IN-PFIZER INC-2010100452

PATIENT
  Age: 28 Year
  Sex: Female

DRUGS (2)
  1. ALPRAZOLAM [Suspect]
     Dosage: 14 TABLETS OF 0.25 MG
  2. PROTHIADEN [Suspect]
     Dosage: 10 TABLETS OF 75 MG

REACTIONS (2)
  - ELECTROCARDIOGRAM ABNORMAL [None]
  - OVERDOSE [None]
